FAERS Safety Report 11228508 (Version 1)
Quarter: 2015Q2

REPORT INFORMATION
  Report Type: Report from Study
  Country: FR (occurrence: FR)
  Receive Date: 20150630
  Receipt Date: 20150630
  Transmission Date: 20150821
  Serious: No
  Sender: FDA-Public Use
  Company Number: FR-ACTELION-A-CH2015-119914

PATIENT
  Sex: Male

DRUGS (1)
  1. MECHLORETHAMINE [Suspect]
     Active Substance: MECHLORETHAMINE
     Indication: OCCUPATIONAL EXPOSURE TO PRODUCT
     Route: 003

REACTIONS (2)
  - Occupational exposure to product [Unknown]
  - Eye irritation [Unknown]
